FAERS Safety Report 8895797 (Version 1)
Quarter: 2012Q4

REPORT INFORMATION
  Report Type: 
  Country: IT (occurrence: IT)
  Receive Date: 20121108
  Receipt Date: 20121108
  Transmission Date: 20130627
  Serious: Yes (Hospitalization)
  Sender: FDA-Public Use
  Company Number: IT-ROCHE-1153824

PATIENT
  Age: 71 Year
  Sex: Male

DRUGS (1)
  1. NAPROXEN [Suspect]
     Indication: PHARYNGITIS
     Route: 048
     Dates: start: 20051212, end: 20051213

REACTIONS (1)
  - Angioedema [Recovering/Resolving]
